FAERS Safety Report 13594201 (Version 1)
Quarter: 2017Q2

REPORT INFORMATION
  Report Type: Spontaneous
  Country: US (occurrence: US)
  Receive Date: 20170530
  Receipt Date: 20170530
  Transmission Date: 20170830
  Serious: Yes (Hospitalization)
  Sender: FDA-Public Use
  Company Number: US-IMPAX LABORATORIES, INC-2017-IPXL-01470

PATIENT
  Age: 38 Year
  Sex: Male

DRUGS (1)
  1. CARISOPRODOL. [Suspect]
     Active Substance: CARISOPRODOL
     Indication: DRUG USE DISORDER
     Dosage: UNK
     Route: 065

REACTIONS (4)
  - Lethargy [Recovered/Resolved]
  - Drug use disorder [Unknown]
  - Dysarthria [Recovered/Resolved]
  - Seizure [Recovered/Resolved]
